FAERS Safety Report 26126720 (Version 1)
Quarter: 2025Q4

REPORT INFORMATION
  Report Type: Spontaneous
  Country: CN (occurrence: CN)
  Receive Date: 20251205
  Receipt Date: 20251205
  Transmission Date: 20260119
  Serious: Yes (Hospitalization)
  Sender: COHERUS
  Company Number: CN-SHANGHAI JUNSHI BIOSCIENCES CO., LTD.-CN2025016699

PATIENT

DRUGS (2)
  1. TORIPALIMAB [Suspect]
     Active Substance: TORIPALIMAB
     Indication: Ureteric cancer
     Dosage: 240 MG, Q2W
     Route: 041
     Dates: start: 20250814, end: 20251124
  2. DISITAMAB VEDOTIN [Suspect]
     Active Substance: DISITAMAB VEDOTIN
     Indication: Ureteric cancer
     Dosage: 60 MG, Q2W
     Route: 041
     Dates: start: 20250814, end: 20251124

REACTIONS (2)
  - Pruritus [Unknown]
  - Liver injury [Unknown]

NARRATIVE: CASE EVENT DATE: 20251114
